FAERS Safety Report 7943601-6 (Version None)
Quarter: 2011Q4

REPORT INFORMATION
  Report Type: 
  Country: None (occurrence: None)
  Receive Date: 20111122
  Receipt Date: 20110825
  Transmission Date: 20120403
  Serious: No
  Sender: FDA-Public Use
  Company Number: PHHY2011US60544

PATIENT
  Age: 55 Year
  Sex: Male
  Weight: 83.9 kg

DRUGS (8)
  1. MULTIVITAMINS (ASCORBIC ACID, ERGOCALCIFEROL, FOLIC ACID, NICOTINAMIDE [Concomitant]
  2. LOSARTAN POTASSIUM [Concomitant]
  3. VITAMIN D [Concomitant]
  4. BACLOFEN [Concomitant]
  5. ZOLOFT [Concomitant]
  6. VITAMIN B12 [Concomitant]
  7. VITAMIN B COMPLEX CAP [Concomitant]
  8. GILENYA [Suspect]
     Dosage: 0.5 MG, QD

REACTIONS (2)
  - BALANCE DISORDER [None]
  - DIZZINESS [None]
